FAERS Safety Report 5722954-3 (Version None)
Quarter: 2008Q2

REPORT INFORMATION
  Report Type: 
  Country: None (occurrence: None)
  Receive Date: 20080428
  Receipt Date: 20080428
  Transmission Date: 20081010
  Serious: No
  Sender: FDA-Public Use
  Company Number: None

PATIENT
  Age: 64 Year
  Sex: Female
  Weight: 76.2043 kg

DRUGS (2)
  1. OMEPRAZOLE DR TABLETS 20 MG AKIVE3-600 ISRAEL [Suspect]
     Indication: GASTROOESOPHAGEAL REFLUX DISEASE
     Dosage: 1 DAILY
     Dates: start: 20080410, end: 20080420
  2. PRILOSEC [Concomitant]

REACTIONS (4)
  - DRUG INEFFECTIVE [None]
  - PAIN [None]
  - PHARMACEUTICAL PRODUCT COMPLAINT [None]
  - THERAPEUTIC RESPONSE UNEXPECTED WITH DRUG SUBSTITUTION [None]
